FAERS Safety Report 7535507-1 (Version None)
Quarter: 2011Q2

REPORT INFORMATION
  Report Type: 
  Country: None (occurrence: None)
  Receive Date: 20110609
  Receipt Date: 20110513
  Transmission Date: 20111010
  Serious: Yes (Other)
  Sender: FDA-Public Use
  Company Number: US-BAYER-201028624NA

PATIENT
  Age: 15 Year
  Sex: Female
  Weight: 70.295 kg

DRUGS (7)
  1. YAZ [Suspect]
     Dosage: UNK UNK, UNK
     Route: 048
     Dates: start: 20060824, end: 20100601
  2. QVAR 40 [Concomitant]
  3. SUCRALFATE [Concomitant]
     Dosage: UNK
     Dates: start: 20081107
  4. VYTORIN [Concomitant]
     Indication: BLOOD CHOLESTEROL DECREASED
     Dosage: UNK
     Dates: start: 20060501, end: 20091101
  5. GLYCOPYRROLATE [Concomitant]
     Dosage: UNK
     Dates: start: 20081114
  6. ALLEGRA D 24 HOUR [Concomitant]
     Indication: HYPERSENSITIVITY
     Dosage: UNK
     Dates: start: 20030901, end: 20090601
  7. OMEPRAZOLE [Concomitant]
     Dosage: UNK
     Dates: start: 20081017

REACTIONS (7)
  - NAUSEA [None]
  - VOMITING [None]
  - EROSIVE OESOPHAGITIS [None]
  - CHOLECYSTITIS CHRONIC [None]
  - BILIARY DYSKINESIA [None]
  - ABDOMINAL PAIN UPPER [None]
  - REFLUX OESOPHAGITIS [None]
